FAERS Safety Report 4861791-9 (Version None)
Quarter: 2005Q4

REPORT INFORMATION
  Report Type: 
  Country: None (occurrence: None)
  Receive Date: 20051220
  Receipt Date: 20050926
  Transmission Date: 20060501
  Serious: Yes (Hospitalization, Disabling)
  Sender: FDA-Public Use
  Company Number: US-MERCK-0509USA04156

PATIENT
  Age: 55 Year
  Sex: Male
  Weight: 84 kg

DRUGS (9)
  1. VIOXX [Suspect]
     Indication: OSTEOARTHRITIS
     Route: 048
     Dates: start: 20020120, end: 20040427
  2. ASPIRIN [Concomitant]
     Route: 065
  3. AMARYL [Concomitant]
     Route: 065
  4. GLUCOPHAGE [Concomitant]
     Route: 065
  5. FLOMAX (MORNIFLUMATE) [Concomitant]
     Route: 065
  6. ACTOS [Concomitant]
     Route: 065
  7. CHLORHEXIDINE GLUCONATE [Concomitant]
     Route: 065
  8. DIPHEN-ATROP [Concomitant]
     Route: 065
  9. METRONIDAZOLE [Concomitant]
     Route: 065

REACTIONS (10)
  - ARTERIOSCLEROSIS [None]
  - BLOOD CHOLESTEROL INCREASED [None]
  - CORONARY ARTERY OCCLUSION [None]
  - HAEMOGLOBIN DECREASED [None]
  - HYPERLIPIDAEMIA [None]
  - HYPERTENSION [None]
  - LABILE HYPERTENSION [None]
  - MYOCARDIAL INFARCTION [None]
  - POST PROCEDURAL COMPLICATION [None]
  - SINUS BRADYCARDIA [None]
